FAERS Safety Report 9379177 (Version 1)
Quarter: 2013Q3

REPORT INFORMATION
  Report Type: Spontaneous
  Country: FR (occurrence: FR)
  Receive Date: 20130702
  Receipt Date: 20130702
  Transmission Date: 20140515
  Serious: Yes (Life-Threatening, Disabling)
  Sender: FDA-Public Use
  Company Number: FR-JNJFOC-20130612167

PATIENT
  Sex: Female

DRUGS (10)
  1. DUROGESIC [Suspect]
     Indication: PAIN
     Route: 062
     Dates: start: 20130517, end: 20130522
  2. TAKADOL [Suspect]
     Indication: PAIN
     Route: 065
     Dates: start: 20130503, end: 20130516
  3. ACTISKENAN [Suspect]
     Indication: PAIN
     Route: 048
     Dates: start: 20130523
  4. ACTISKENAN [Suspect]
     Indication: PAIN
     Dosage: 2-1-2
     Route: 048
     Dates: start: 20130503
  5. ACTISKENAN [Suspect]
     Indication: PAIN
     Dosage: (2-2-2)
     Route: 048
     Dates: start: 20130522
  6. MORPHINE [Suspect]
     Indication: PAIN
     Dosage: (1-1-1)
     Route: 058
     Dates: start: 20130503
  7. MORPHINE [Suspect]
     Indication: PAIN
     Route: 058
     Dates: start: 20130523
  8. ACUPAN [Suspect]
     Indication: PAIN
     Route: 030
     Dates: start: 20130503, end: 20130516
  9. SKENAN [Suspect]
     Indication: PAIN
     Route: 048
     Dates: start: 20130523
  10. SKENAN [Suspect]
     Indication: PAIN
     Route: 048
     Dates: start: 20130503, end: 20130516

REACTIONS (1)
  - Drug dependence [Unknown]
